FAERS Safety Report 16054904 (Version 2)
Quarter: 2019Q2

REPORT INFORMATION
  Report Type: Report from Study
  Country: IT (occurrence: IT)
  Receive Date: 20190310
  Receipt Date: 20190411
  Transmission Date: 20190711
  Serious: Yes (Other)
  Sender: FDA-Public Use
  Company Number: IT-ACCORD-111935

PATIENT
  Age: 72 Year
  Sex: Female

DRUGS (2)
  1. ATORVASTATIN/ATORVASTATIN CALCIUM [Suspect]
     Active Substance: ATORVASTATIN CALCIUM
     Indication: HYPERCHOLESTEROLAEMIA
     Route: 048
  2. EFIENT [Suspect]
     Active Substance: PRASUGREL HYDROCHLORIDE
     Indication: PROPHYLAXIS
     Dosage: STRENGTH: 5 MG
     Route: 048

REACTIONS (4)
  - Trunk injury [Unknown]
  - Pruritus [Unknown]
  - Dermatitis bullous [Unknown]
  - Skin reaction [Unknown]

NARRATIVE: CASE EVENT DATE: 20180620
